FAERS Safety Report 24677832 (Version 1)
Quarter: 2024Q4

REPORT INFORMATION
  Report Type: Spontaneous
  Country: CN (occurrence: CN)
  Receive Date: 20241129
  Receipt Date: 20241129
  Transmission Date: 20250115
  Serious: Yes (Hospitalization)
  Sender: HISUN PHARMACEUTICALS USA INC
  Company Number: CN-Hisun Pharmaceuticals USA Inc.-000120

PATIENT
  Age: 55 Year
  Sex: Female
  Weight: 87 kg

DRUGS (1)
  1. IRBESARTAN [Suspect]
     Active Substance: IRBESARTAN
     Indication: Hypertension
     Route: 048
     Dates: start: 20241116, end: 20241116

REACTIONS (3)
  - Headache [Recovering/Resolving]
  - Tinnitus [Not Recovered/Not Resolved]
  - Abdominal distension [Unknown]

NARRATIVE: CASE EVENT DATE: 20241116
